FAERS Safety Report 14874014 (Version 1)
Quarter: 2018Q2

REPORT INFORMATION
  Report Type: Spontaneous
  Country: US (occurrence: US)
  Receive Date: 20180424
  Receipt Date: 20180424
  Transmission Date: 20180711
  Serious: No
  Sender: FDA-Public Use
  Company Number: None

PATIENT
  Age: 45 Year
  Sex: Female

DRUGS (1)
  1. COSENTYX [Suspect]
     Active Substance: SECUKINUMAB
     Indication: PSORIATIC ARTHROPATHY
     Dosage: 150MG EVERY 4 WEEKS; SQ?
     Route: 058
     Dates: start: 20180206

REACTIONS (10)
  - Ear discomfort [None]
  - Rash [None]
  - Scab [None]
  - Eye irritation [None]
  - Lacrimation increased [None]
  - Ocular hyperaemia [None]
  - Therapy non-responder [None]
  - Psoriasis [None]
  - Dry skin [None]
  - Fatigue [None]

NARRATIVE: CASE EVENT DATE: 20180420
